FAERS Safety Report 5737166-7 (Version None)
Quarter: 2008Q2

REPORT INFORMATION
  Report Type: 
  Country: None (occurrence: None)
  Receive Date: 20080514
  Receipt Date: 20080505
  Transmission Date: 20081010
  Serious: Yes (Other)
  Sender: FDA-Public Use
  Company Number: US-ROCHE-552164

PATIENT
  Sex: Female
  Weight: 63.5 kg

DRUGS (5)
  1. BONIVA [Suspect]
     Indication: BONE DENSITY DECREASED
     Route: 048
     Dates: start: 20070805
  2. CLEOCIN HYDROCHLORIDE [Suspect]
     Route: 065
     Dates: start: 20080101
  3. VESICARE [Concomitant]
  4. VITAMINS NOS [Concomitant]
  5. CEPHALEXIN [Concomitant]
     Indication: PROPHYLAXIS
     Dates: start: 20080101, end: 20080101

REACTIONS (4)
  - COLITIS [None]
  - DIARRHOEA [None]
  - FORMICATION [None]
  - POSTOPERATIVE WOUND INFECTION [None]
